FAERS Safety Report 8328561-0 (Version None)
Quarter: 2012Q2

REPORT INFORMATION
  Report Type: 
  Country: None (occurrence: None)
  Receive Date: 20120430
  Receipt Date: 20120420
  Transmission Date: 20120825
  Serious: Yes (Other)
  Sender: FDA-Public Use
  Company Number: 2012FO000700

PATIENT
  Sex: Male

DRUGS (1)
  1. GENTAMICIN SULFATE [Suspect]
     Indication: EAR PAIN
     Dosage: X1; IAUR
     Route: 001

REACTIONS (9)
  - INCORRECT ROUTE OF DRUG ADMINISTRATION [None]
  - SKIN DISCOLOURATION [None]
  - NERVE INJURY [None]
  - EAR DISCOMFORT [None]
  - EAR PAIN [None]
  - PRURITUS [None]
  - TINNITUS [None]
  - CONDITION AGGRAVATED [None]
  - DEAFNESS [None]
